FAERS Safety Report 5368830-X (Version None)
Quarter: 2007Q2

REPORT INFORMATION
  Report Type: 
  Country: None (occurrence: None)
  Receive Date: 20070625
  Receipt Date: 20070615
  Transmission Date: 20071010
  Serious: No
  Sender: FDA-Public Use
  Company Number: US-ELI_LILLY_AND_COMPANY-US200706004309

PATIENT
  Age: 85 Year
  Sex: Female

DRUGS (4)
  1. CYMBALTA [Suspect]
     Dosage: 60 MG, UNK
     Dates: start: 20070327, end: 20070515
  2. COUMADIN [Concomitant]
     Dosage: 5 G, UNK
     Dates: start: 20070327
  3. COUMADIN [Concomitant]
     Dosage: 7.5 G, UNK
  4. EFFEXOR XR [Concomitant]
     Indication: DEPRESSION
     Dosage: 75 MG, UNK
     Dates: start: 20070515

REACTIONS (3)
  - DRUG INTERACTION [None]
  - INTERNATIONAL NORMALISED RATIO DECREASED [None]
  - PROTHROMBIN LEVEL DECREASED [None]
